FAERS Safety Report 24883111 (Version 1)
Quarter: 2025Q1

REPORT INFORMATION
  Report Type: Spontaneous
  Country: US (occurrence: US)
  Receive Date: 20250124
  Receipt Date: 20250124
  Transmission Date: 20250409
  Serious: Yes (Other)
  Sender: GRIFOLS
  Company Number: US-IGSA-BIG0032682

PATIENT
  Age: 40 Year
  Sex: Female

DRUGS (1)
  1. XEMBIFY [Suspect]
     Active Substance: HUMAN IMMUNOGLOBULIN G
     Indication: Immunodeficiency common variable
     Dosage: 10 GRAM, Q.WK.
     Route: 058
     Dates: start: 20250105, end: 20250105

REACTIONS (3)
  - Headache [Unknown]
  - Vision blurred [Unknown]
  - Brain oedema [Unknown]

NARRATIVE: CASE EVENT DATE: 20250105
